FAERS Safety Report 11180214 (Version 1)
Quarter: 2015Q2

REPORT INFORMATION
  Report Type: Spontaneous
  Country: GB (occurrence: None)
  Receive Date: 20150609
  Receipt Date: 20150609
  Transmission Date: 20150821
  Serious: Yes (Other)
  Sender: FDA-Public Use
  Company Number: FK201502648

PATIENT
  Age: 69 Year
  Sex: Male

DRUGS (3)
  1. OXALIPLATIN (MANUFACTURER UNKNOWN) (OXALIPLATIN) (OXALIPLATIN) [Suspect]
     Active Substance: OXALIPLATIN
     Indication: HEPATOCELLULAR CARCINOMA
     Route: 042
  2. FLUOROURACIL (MANUFACTURER UNKNOWN) (FLUOROURACIL) (FLUOROURACIL) [Suspect]
     Active Substance: FLUOROURACIL
     Indication: HEPATOCELLULAR CARCINOMA
     Dosage: 400 MG/M2, 1 IN 2 WK
     Route: 040
  3. LEUCOVORIN CALCIUM (MANUFACTURER UNKNOWN) (LEUCOVORIN CALCIUM) (LEUCOVORIN CALCIUM) [Suspect]
     Active Substance: LEUCOVORIN CALCIUM
     Indication: HEPATOCELLULAR CARCINOMA
     Dosage: 350 MG, 1 IN 2 WK
     Route: 042

REACTIONS (2)
  - Neutropenia [None]
  - Thrombocytopenia [None]
